FAERS Safety Report 14847466 (Version 6)
Quarter: 2025Q3

REPORT INFORMATION
  Report Type: Spontaneous
  Country: EU (occurrence: EU)
  Receive Date: 20180504
  Receipt Date: 20250818
  Transmission Date: 20251021
  Serious: Yes (Death, Life-Threatening, Hospitalization, Other)
  Sender: AUROBINDO
  Company Number: EU-AUROBINDO-AUR-APL-2018-023570

PATIENT
  Age: 17 Year
  Sex: Female

DRUGS (18)
  1. FLECAINIDE [Suspect]
     Active Substance: FLECAINIDE
     Indication: Product used for unknown indication
     Route: 065
  2. FLECAINIDE [Suspect]
     Active Substance: FLECAINIDE
     Route: 065
  3. POTASSIUM [Concomitant]
     Active Substance: POTASSIUM
     Indication: Product used for unknown indication
     Route: 065
  4. LIDOCAINE [Concomitant]
     Active Substance: LIDOCAINE
     Indication: Product used for unknown indication
     Route: 065
  5. NOREPINEPHRINE [Concomitant]
     Active Substance: NOREPINEPHRINE
     Indication: Product used for unknown indication
     Route: 065
  6. EPINEPHRINE [Concomitant]
     Active Substance: EPINEPHRINE
     Indication: Product used for unknown indication
     Route: 065
  7. AMIODARONE [Concomitant]
     Active Substance: AMIODARONE
     Indication: Product used for unknown indication
     Route: 065
  8. ENOXIMONE [Concomitant]
     Active Substance: ENOXIMONE
     Indication: Product used for unknown indication
     Route: 065
  9. MIDAZOLAM [Concomitant]
     Active Substance: MIDAZOLAM
     Indication: Product used for unknown indication
     Route: 065
  10. KETAMINE [Concomitant]
     Active Substance: KETAMINE
     Indication: Product used for unknown indication
     Route: 065
  11. SODIUM BICARBONATE [Concomitant]
     Active Substance: SODIUM BICARBONATE
     Indication: Product used for unknown indication
     Route: 065
  12. METAPROTERENOL [Concomitant]
     Active Substance: METAPROTERENOL
     Indication: Product used for unknown indication
     Route: 065
  13. SULTAMICILLIN [Concomitant]
     Active Substance: SULTAMICILLIN
     Indication: Product used for unknown indication
     Route: 065
  14. ATROPINE [Concomitant]
     Active Substance: ATROPINE
     Indication: Product used for unknown indication
     Route: 065
  15. MAGNESIUM [Concomitant]
     Active Substance: MAGNESIUM
     Indication: Product used for unknown indication
     Route: 065
  16. HYDROCORTISONE [Concomitant]
     Active Substance: HYDROCORTISONE
     Indication: Product used for unknown indication
     Route: 065
  17. VASOPRESSIN [Concomitant]
     Active Substance: VASOPRESSIN
     Indication: Product used for unknown indication
     Route: 065
  18. CALCIUM CHLORIDE [Concomitant]
     Active Substance: CALCIUM CHLORIDE
     Indication: Product used for unknown indication
     Route: 065

REACTIONS (16)
  - Toxicity to various agents [Fatal]
  - Electrocardiogram QRS complex prolonged [Fatal]
  - Suicidal ideation [Fatal]
  - Cardiogenic shock [Fatal]
  - Intentional overdose [Fatal]
  - Vomiting [Fatal]
  - Ventricular tachycardia [Fatal]
  - Somnolence [Fatal]
  - Suicide attempt [Unknown]
  - Prescription drug used without a prescription [Unknown]
  - Miosis [Unknown]
  - Anxiety [Unknown]
  - Blood pressure decreased [Not Recovered/Not Resolved]
  - Seizure [Unknown]
  - Tachypnoea [Unknown]
  - Skin abrasion [Unknown]
